FAERS Safety Report 8263337-4 (Version None)
Quarter: 2012Q2

REPORT INFORMATION
  Report Type: 
  Country: None (occurrence: None)
  Receive Date: 20120405
  Receipt Date: 20120328
  Transmission Date: 20120825
  Serious: Yes (Hospitalization, Other)
  Sender: FDA-Public Use
  Company Number: US-MPIJNJ-2012-02221

PATIENT
  Age: 1 Year
  Sex: Female
  Weight: 7.64 kg

DRUGS (5)
  1. CYTARABINE [Suspect]
     Indication: B PRECURSOR TYPE ACUTE LEUKAEMIA
     Dosage: UNK MG, CYCLIC
     Route: 037
  2. VINCRISTINE [Suspect]
     Indication: B PRECURSOR TYPE ACUTE LEUKAEMIA
     Dosage: 1.5 MG/M2, CYCLIC
     Route: 040
     Dates: start: 20120323, end: 20120323
  3. VELCADE [Suspect]
     Indication: B PRECURSOR TYPE ACUTE LEUKAEMIA
     Dosage: 1.3 MG/M2, CYCLIC
     Route: 040
     Dates: start: 20120323, end: 20120323
  4. DOXORUBICIN HCL [Suspect]
     Indication: B PRECURSOR TYPE ACUTE LEUKAEMIA
     Dosage: 60 MG/M2, CYCLIC
     Route: 042
     Dates: start: 20120323, end: 20120323
  5. PREDNISONE [Suspect]
     Indication: B PRECURSOR TYPE ACUTE LEUKAEMIA
     Dosage: 20 MG/M2, UNK
     Route: 048
     Dates: start: 20120323, end: 20120324

REACTIONS (11)
  - INFLUENZA LIKE ILLNESS [None]
  - DYSPNOEA [None]
  - PERIPHERAL SENSORY NEUROPATHY [None]
  - PYREXIA [None]
  - VOMITING [None]
  - SINUS BRADYCARDIA [None]
  - LUNG INFILTRATION [None]
  - NAUSEA [None]
  - CHILLS [None]
  - DIARRHOEA [None]
  - HYPOTHERMIA [None]
